FAERS Safety Report 14573980 (Version 1)
Quarter: 2018Q1

REPORT INFORMATION
  Report Type: Spontaneous
  Country: NL (occurrence: NL)
  Receive Date: 20180226
  Receipt Date: 20180226
  Transmission Date: 20180509
  Serious: Yes (Disabling, Other)
  Sender: FDA-Public Use
  Company Number: NL-ENDO PHARMACEUTICALS INC-2016-003000

PATIENT
  Age: 38 Year
  Sex: Female
  Weight: 69.98 kg

DRUGS (6)
  1. ESOMEPRAZOLE [Concomitant]
     Active Substance: ESOMEPRAZOLE
     Indication: PRODUCT USED FOR UNKNOWN INDICATION
     Dosage: UNK UNKNOWN, UNKNOWN
     Route: 065
     Dates: start: 20110101
  2. TESTIM [Suspect]
     Active Substance: TESTOSTERONE
     Indication: HORMONE THERAPY
  3. TESTIM [Suspect]
     Active Substance: TESTOSTERONE
     Indication: TRANSGENDER HORMONAL THERAPY
     Dosage: 100 MG, WEEKLY
     Route: 065
  4. AVEED [Suspect]
     Active Substance: TESTOSTERONE UNDECANOATE
     Indication: TRANS-SEXUALISM
     Dosage: 250 MG, EVERY THREE WEEKS
     Route: 065
     Dates: start: 1999
  5. AVEED [Suspect]
     Active Substance: TESTOSTERONE UNDECANOATE
     Indication: HORMONE THERAPY
     Dosage: 1000MG, Q12W
     Route: 030
     Dates: start: 20110101
  6. AVEED [Suspect]
     Active Substance: TESTOSTERONE UNDECANOATE
     Indication: TRANSGENDER HORMONAL THERAPY
     Dosage: 250 MG, BIWEEKLY
     Route: 065
     Dates: start: 19980101, end: 1999

REACTIONS (2)
  - Off label use [Unknown]
  - Polycythaemia [Recovering/Resolving]

NARRATIVE: CASE EVENT DATE: 1998
